FAERS Safety Report 13269420 (Version 1)
Quarter: 2017Q1

REPORT INFORMATION
  Report Type: Spontaneous
  Country: JP (occurrence: JP)
  Receive Date: 20170224
  Receipt Date: 20170224
  Transmission Date: 20170428
  Serious: Yes (Other)
  Sender: FDA-Public Use
  Company Number: JP-BAYER-2017-033185

PATIENT
  Age: 78 Year
  Sex: Male

DRUGS (2)
  1. XOFIGO [Suspect]
     Active Substance: RADIUM RA-223 DICHLORIDE
     Indication: METASTASES TO BONE
  2. XOFIGO [Suspect]
     Active Substance: RADIUM RA-223 DICHLORIDE
     Indication: PROSTATE CANCER STAGE IV
     Dosage: 1 DF, Q4WK
     Route: 042
     Dates: start: 20161121, end: 20170213

REACTIONS (1)
  - Osteonecrosis of jaw [Not Recovered/Not Resolved]
